FAERS Safety Report 12460826 (Version 1)
Quarter: 2016Q2

REPORT INFORMATION
  Report Type: Report from Study
  Country: GB (occurrence: GB)
  Receive Date: 20160613
  Receipt Date: 20160613
  Transmission Date: 20160815
  Serious: Yes (Other)
  Sender: FDA-Public Use
  Company Number: GB-PFIZER INC-2016288791

PATIENT

DRUGS (2)
  1. PHENYTOIN SODIUM. [Suspect]
     Active Substance: PHENYTOIN SODIUM
     Dosage: BETWEEN 3 AND 6 MG/KG/DOSE FOR ALL MAINTENANCE DOSES
     Route: 042
  2. PHENYTOIN SODIUM. [Suspect]
     Active Substance: PHENYTOIN SODIUM
     Dosage: BETWEEN 18 AND 20 MG/KG/DOSE FOR ALL LOADING DOSES
     Route: 042

REACTIONS (2)
  - Incorrect drug administration rate [Recovered/Resolved]
  - Tachycardia [Recovered/Resolved]
